FAERS Safety Report 4276389-3 (Version None)
Quarter: 2004Q1

REPORT INFORMATION
  Report Type: 
  Country: None (occurrence: None)
  Receive Date: 20040121
  Receipt Date: 20040113
  Transmission Date: 20041129
  Serious: Yes (Other)
  Sender: FDA-Public Use
  Company Number: MX-BRISTOL-MYERS SQUIBB COMPANY-12476776

PATIENT
  Age: 32 Year
  Sex: Female

DRUGS (2)
  1. VASODILAN [Suspect]
     Indication: HAEMORRHAGE
     Route: 048
  2. CUERPO AMARILLO FUERTE [Concomitant]
     Indication: HAEMORRHAGE
     Route: 051

REACTIONS (6)
  - GESTATIONAL DIABETES [None]
  - LIMB MALFORMATION [None]
  - MATERNAL DRUGS AFFECTING FOETUS [None]
  - NEONATAL DISORDER [None]
  - PREGNANCY [None]
  - VAGINAL HAEMORRHAGE [None]
